FAERS Safety Report 8507226-6 (Version None)
Quarter: 2012Q3

REPORT INFORMATION
  Report Type: 
  Country: None (occurrence: None)
  Receive Date: 20120712
  Receipt Date: 20120709
  Transmission Date: 20120928
  Serious: No
  Sender: FDA-Public Use
  Company Number: US-BAYER-2012-069415

PATIENT
  Age: 93 Year
  Sex: Female
  Weight: 75 kg

DRUGS (4)
  1. EYE DROPS [Concomitant]
  2. UNKNOWN [Concomitant]
  3. ALEVE (CAPLET) [Suspect]
     Indication: ARTHRALGIA
     Dosage: 1 DF, PRN
     Route: 048
  4. HEARTBUR ANTACID [Concomitant]

REACTIONS (1)
  - OEDEMA PERIPHERAL [None]
